FAERS Safety Report 6691625-1 (Version None)
Quarter: 2010Q2

REPORT INFORMATION
  Report Type: 
  Country: None (occurrence: None)
  Receive Date: 20100422
  Receipt Date: 20090806
  Transmission Date: 20101027
  Serious: No
  Sender: FDA-Public Use
  Company Number: US-ASTRAZENECA-2009SE07156

PATIENT
  Age: 64 Year
  Sex: Female
  Weight: 113 kg

DRUGS (11)
  1. TOPROL-XL [Suspect]
     Route: 048
  2. CRESTOR [Concomitant]
  3. METFORMIN HCL [Concomitant]
  4. LOVAZA [Concomitant]
  5. ALTACE [Concomitant]
  6. TRICOR [Concomitant]
  7. ZETIA [Concomitant]
  8. GLIMEPIRIDE [Concomitant]
  9. HYDROCHLOROTHIAZIDE [Concomitant]
  10. ASPIRIN [Concomitant]
  11. M.V.I. [Concomitant]

REACTIONS (1)
  - NEPHROLITHIASIS [None]
